FAERS Safety Report 5591301-2 (Version None)
Quarter: 2008Q1

REPORT INFORMATION
  Report Type: 
  Country: None (occurrence: None)
  Receive Date: 20080115
  Receipt Date: 20080102
  Transmission Date: 20080703
  Serious: Yes (Other)
  Sender: FDA-Public Use
  Company Number: IL-AMGEN-UK260065

PATIENT
  Sex: Male
  Weight: 2.54 kg

DRUGS (2)
  1. NEUPOGEN [Suspect]
     Indication: NEUTROPENIA
  2. NEUPOGEN [Suspect]

REACTIONS (1)
  - THROMBOCYTHAEMIA [None]
